FAERS Safety Report 11629177 (Version 2)
Quarter: 2015Q4

REPORT INFORMATION
  Report Type: Spontaneous
  Country: US (occurrence: US)
  Receive Date: 20151014
  Receipt Date: 20151127
  Transmission Date: 20160304
  Serious: Yes (Other)
  Sender: FDA-Public Use
  Company Number: US-PFIZER INC-2015339413

PATIENT
  Age: 52 Year
  Sex: Female
  Weight: 82 kg

DRUGS (17)
  1. VALIUM [Concomitant]
     Active Substance: DIAZEPAM
     Indication: DEPRESSION
     Dosage: 10 MG, EVERY NIGHT
  2. IMURAN [Concomitant]
     Active Substance: AZATHIOPRINE
     Indication: SYSTEMIC LUPUS ERYTHEMATOSUS
     Dosage: 50 MG, 1X/DAY
     Route: 048
  3. CORMAX [Concomitant]
     Active Substance: CLOBETASOL PROPIONATE
     Indication: SYSTEMIC LUPUS ERYTHEMATOSUS
  4. LYRICA [Suspect]
     Active Substance: PREGABALIN
     Indication: PAIN IN EXTREMITY
     Dosage: 125 MG, 3X/DAY
     Route: 048
     Dates: start: 201501
  5. ATORVASTATIN [Concomitant]
     Active Substance: ATORVASTATIN
     Indication: BLOOD CHOLESTEROL INCREASED
     Dosage: 40 MG ONE EVERY NIGHT
     Route: 048
  6. TYLENOL-CODEINE #3 [Concomitant]
     Indication: PAIN IN EXTREMITY
     Dosage: THREE TIMES A DAY
     Dates: start: 201406
  7. PLAQUENIL [Concomitant]
     Active Substance: HYDROXYCHLOROQUINE SULFATE
     Indication: SYSTEMIC LUPUS ERYTHEMATOSUS
     Dosage: 200 MG, 2X/DAY
     Dates: start: 201503
  8. CORMAX [Concomitant]
     Active Substance: CLOBETASOL PROPIONATE
     Indication: LIMB DISCOMFORT
     Dosage: UNK, 2X/DAY
  9. LYRICA [Suspect]
     Active Substance: PREGABALIN
     Indication: DIABETIC NEUROPATHY
  10. LOSARTAN. [Concomitant]
     Active Substance: LOSARTAN
     Indication: HYPERTENSION
     Dosage: [LOSARTAN POTASSIUM 100MG]/ [HYDROCHLOROTHIAZIDE 25MG], 1X/DAY
  11. LEVOTHYROXINE SODIUM. [Concomitant]
     Active Substance: LEVOTHYROXINE SODIUM
     Indication: AUTOIMMUNE THYROIDITIS
     Dosage: UNK
  12. LYRICA [Suspect]
     Active Substance: PREGABALIN
     Indication: HYPOAESTHESIA
     Dosage: 225 MG, 2X/DAY
     Route: 048
  13. INSULIN [Concomitant]
     Active Substance: INSULIN NOS
     Dosage: UNK, 1X/DAY
  14. JANUMET [Concomitant]
     Active Substance: METFORMIN HYDROCHLORIDE\SITAGLIPTIN PHOSPHATE
     Indication: TYPE 2 DIABETES MELLITUS
     Dosage: [SITAGLIPTIN 50MG]/ [METFORMIN HCL 1000MG],  2X/DAY, ONE IN THE MORNING AND ONE IN THE EVENING
  15. INVOKANA [Concomitant]
     Active Substance: CANAGLIFLOZIN
     Indication: DIABETES MELLITUS
     Dosage: 300MG EVERY MORNING
     Route: 048
  16. FENOFIBRATE. [Concomitant]
     Active Substance: FENOFIBRATE
     Indication: BLOOD CHOLESTEROL ABNORMAL
     Dosage: 130 MG, 1X/DAY
  17. BUPROPION. [Concomitant]
     Active Substance: BUPROPION
     Indication: DEPRESSION
     Dosage: 150 MG, EVERY MORNING
     Route: 048
     Dates: start: 2015

REACTIONS (5)
  - Insomnia [Unknown]
  - Pain in extremity [Unknown]
  - Disease recurrence [Unknown]
  - Systemic lupus erythematosus [Unknown]
  - Condition aggravated [Unknown]

NARRATIVE: CASE EVENT DATE: 2015
